FAERS Safety Report 21437629 (Version 1)
Quarter: 2022Q4

REPORT INFORMATION
  Report Type: Spontaneous
  Country: JP (occurrence: JP)
  Receive Date: 20221011
  Receipt Date: 20221011
  Transmission Date: 20230112
  Serious: Yes (Hospitalization)
  Sender: FDA-Public Use
  Company Number: JP-STRIDES ARCOLAB LIMITED-2022SP012812

PATIENT
  Age: 10 Month
  Sex: Female

DRUGS (1)
  1. METOCLOPRAMIDE [Suspect]
     Active Substance: METOCLOPRAMIDE
     Indication: Vomiting
     Dosage: 0.27 MILLIGRAM/KILOGRAM, SINGLE
     Route: 065

REACTIONS (3)
  - Incorrect dose administered [Unknown]
  - Tremor [Recovered/Resolved]
  - Off label use [Unknown]
